FAERS Safety Report 6097702-0 (Version None)
Quarter: 2009Q1

REPORT INFORMATION
  Report Type: 
  Country: None (occurrence: None)
  Receive Date: 20090227
  Receipt Date: 20090127
  Transmission Date: 20090719
  Serious: No
  Sender: FDA-Public Use
  Company Number: US-BAYER-200814993BCC

PATIENT
  Sex: Female
  Weight: 73 kg

DRUGS (3)
  1. ALEVE [Suspect]
     Indication: ARTHRITIS
     Route: 048
  2. DOLESTRAIDOL [Concomitant]
  3. LEVOTHYROXIDE [Concomitant]

REACTIONS (1)
  - PETECHIAE [None]
